FAERS Safety Report 9153414 (Version 1)
Quarter: 2013Q1

REPORT INFORMATION
  Report Type: Spontaneous
  Country: DK (occurrence: None)
  Receive Date: 20130204
  Receipt Date: 20130204
  Transmission Date: 20140127
  Serious: Yes (Hospitalization)
  Sender: FDA-Public Use
  Company Number: 2013MA000846

PATIENT
  Age: 43 Year
  Sex: Male

DRUGS (2)
  1. FEVERALL [Suspect]
     Route: 048
     Dates: start: 20130122, end: 20130122
  2. AUGMENTIN (NO PREF. NAME [Suspect]
     Route: 048
     Dates: start: 20130122, end: 20130122

REACTIONS (4)
  - Hypotension [None]
  - Intentional self-injury [None]
  - Intentional drug misuse [None]
  - Overdose [None]
